FAERS Safety Report 6396489-1 (Version None)
Quarter: 2009Q4

REPORT INFORMATION
  Report Type: 
  Country: None (occurrence: None)
  Receive Date: 20091012
  Receipt Date: 20091001
  Transmission Date: 20100525
  Serious: Yes (Other)
  Sender: FDA-Public Use
  Company Number: US-AMGEN-QUU364645

PATIENT
  Sex: Female
  Weight: 113.5 kg

DRUGS (11)
  1. ENBREL [Suspect]
     Indication: PSORIATIC ARTHROPATHY
     Route: 058
     Dates: start: 20090513, end: 20090612
  2. METHOTREXATE [Concomitant]
     Route: 058
  3. BYETTA [Concomitant]
  4. FOSAMAX [Concomitant]
  5. GLUCOPHAGE [Concomitant]
  6. LYRICA [Concomitant]
  7. PREDNISONE [Concomitant]
  8. SYNTHROID [Concomitant]
  9. TRICOR [Concomitant]
  10. VOLTAREN [Concomitant]
  11. VITAMIN D [Concomitant]

REACTIONS (2)
  - MULTIPLE SCLEROSIS [None]
  - TRIGEMINAL NEURALGIA [None]
